FAERS Safety Report 12086379 (Version 1)
Quarter: 2016Q1

REPORT INFORMATION
  Report Type: Spontaneous
  Country: US (occurrence: US)
  Receive Date: 20160217
  Receipt Date: 20160217
  Transmission Date: 20160526
  Serious: No
  Sender: FDA-Public Use
  Company Number: US-ALLERGAN-1509965US

PATIENT
  Sex: Female

DRUGS (2)
  1. LOTEMAX [Concomitant]
     Active Substance: LOTEPREDNOL ETABONATE
     Route: 047
  2. RESTASIS [Suspect]
     Active Substance: CYCLOSPORINE
     Indication: DRY EYE
     Dosage: 4 GTT, BID
     Route: 047
     Dates: start: 20150508

REACTIONS (4)
  - Eyelid oedema [Not Recovered/Not Resolved]
  - Intentional product misuse [Unknown]
  - Ocular discomfort [Not Recovered/Not Resolved]
  - Ocular hyperaemia [Not Recovered/Not Resolved]
